FAERS Safety Report 7614106-7 (Version None)
Quarter: 2011Q3

REPORT INFORMATION
  Report Type: 
  Country: None (occurrence: None)
  Receive Date: 20110708
  Receipt Date: 20110624
  Transmission Date: 20111222
  Serious: Yes (Other)
  Sender: FDA-Public Use
  Company Number: 2011SP029870

PATIENT
  Sex: Female

DRUGS (1)
  1. CERAZETTE (DESOGESTREL /00754001/) [Suspect]
     Indication: HEADACHE
     Dates: start: 20110501

REACTIONS (3)
  - AGGRESSION [None]
  - DEPRESSED MOOD [None]
  - FEELING ABNORMAL [None]
